FAERS Safety Report 5642269-1 (Version None)
Quarter: 2008Q1

REPORT INFORMATION
  Report Type: 
  Country: None (occurrence: None)
  Receive Date: 20080225
  Receipt Date: 20080212
  Transmission Date: 20080703
  Serious: Yes (Hospitalization)
  Sender: FDA-Public Use
  Company Number: 2007BI020656

PATIENT
  Age: 27 Year
  Sex: Female

DRUGS (15)
  1. AVONEX [Suspect]
     Indication: MULTIPLE SCLEROSIS
     Dosage: 30 UG QW IM
     Route: 030
     Dates: start: 20051201
  2. NORCO [Concomitant]
  3. MIRALAX [Concomitant]
  4. NEURONTIN [Concomitant]
  5. BACLOFEN [Concomitant]
  6. SODIUM PHOSPHATES [Concomitant]
  7. PROTONIX [Concomitant]
  8. DULCOLAX [Concomitant]
  9. SENOKOT [Concomitant]
  10. AMITRIPTYLINE HCL [Concomitant]
  11. AMBIEN [Concomitant]
  12. HEPARIN [Concomitant]
  13. MILK OF MAGNESIA [Concomitant]
  14. SINGULAIR [Concomitant]
  15. FOSAMAX [Concomitant]

REACTIONS (7)
  - ABASIA [None]
  - CATHETER SITE PAIN [None]
  - CONDITION AGGRAVATED [None]
  - MULTIPLE SCLEROSIS [None]
  - NEUROGENIC BLADDER [None]
  - PARAPARESIS [None]
  - URINARY TRACT INFECTION [None]
